FAERS Safety Report 6110348-0 (Version None)
Quarter: 2009Q1

REPORT INFORMATION
  Report Type: 
  Country: None (occurrence: None)
  Receive Date: 20090310
  Receipt Date: 20090226
  Transmission Date: 20090719
  Serious: Yes (Death, Hospitalization)
  Sender: FDA-Public Use
  Company Number: JP-PFIZER INC-2009173040

PATIENT

DRUGS (4)
  1. SUNITINIB MALATE [Suspect]
     Indication: RENAL CELL CARCINOMA
     Dosage: 50 MG, 1X/DAY
     Route: 048
     Dates: start: 20080226, end: 20090125
  2. HYPEN [Concomitant]
     Dosage: 400 G/DAY TWICE DAILY
     Route: 048
  3. OXYCONTIN [Concomitant]
     Dosage: 150 G/DAY 3 TIMES DAILY
     Route: 048
  4. OXINORM [Concomitant]
     Dosage: FROM 5 MG/DAY TO 15 MG/DAY, 3 TIMES DAILY
     Route: 048

REACTIONS (5)
  - DISEASE PROGRESSION [None]
  - HAEMOPTYSIS [None]
  - HAEMORRHAGIC ANAEMIA [None]
  - PNEUMOTHORAX [None]
  - RENAL CELL CARCINOMA [None]
